FAERS Safety Report 21940883 (Version 2)
Quarter: 2023Q2

REPORT INFORMATION
  Report Type: Spontaneous
  Country: US (occurrence: US)
  Receive Date: 20230202
  Receipt Date: 20230413
  Transmission Date: 20230722
  Serious: No
  Sender: FDA-Public Use
  Company Number: US-JNJFOC-20230157574

PATIENT
  Age: 36 Year
  Sex: Male
  Weight: 136.20 kg

DRUGS (4)
  1. SPRAVATO [Suspect]
     Active Substance: ESKETAMINE
     Indication: Major depression
     Dates: start: 20230123
  2. VYVANSE [Concomitant]
     Active Substance: LISDEXAMFETAMINE DIMESYLATE
     Indication: Attention deficit hyperactivity disorder
     Dosage: 50 MG PO DAILY
     Dates: start: 20200928
  3. VIIBRYD [Concomitant]
     Active Substance: VILAZODONE HYDROCHLORIDE
     Indication: Major depression
     Dosage: 40 MG PO DAILY
     Dates: start: 20190730
  4. TRILEPTAL [Concomitant]
     Active Substance: OXCARBAZEPINE
     Indication: Major depression
     Dosage: 900 MG DAILY
     Dates: start: 20200810

REACTIONS (8)
  - Dissociation [Recovered/Resolved]
  - Vomiting [Recovered/Resolved]
  - Abnormal dreams [Unknown]
  - Gait disturbance [Unknown]
  - Hypertension [Recovered/Resolved]
  - Product dose omission issue [Unknown]
  - Nausea [Unknown]
  - Dizziness [Unknown]

NARRATIVE: CASE EVENT DATE: 20230123
